FAERS Safety Report 25107096 (Version 1)
Quarter: 2025Q1

REPORT INFORMATION
  Report Type: Spontaneous
  Country: US (occurrence: US)
  Receive Date: 20250321
  Receipt Date: 20250321
  Transmission Date: 20250408
  Serious: Yes (Other)
  Sender: THE MENTHOLATUM COMPANY
  Company Number: US-The Mentholatum Company-2173430

PATIENT
  Age: 43 Year
  Sex: Male
  Weight: 70.455 kg

DRUGS (2)
  1. ROHTO COOL MAX [Suspect]
     Active Substance: NAPHAZOLINE HYDROCHLORIDE\POLYSORBATE 80
     Indication: Ocular hyperaemia
  2. ROHTO COOL MAX [Suspect]
     Active Substance: NAPHAZOLINE HYDROCHLORIDE\POLYSORBATE 80
     Indication: Dry eye

REACTIONS (1)
  - Eye irritation [Recovered/Resolved]

NARRATIVE: CASE EVENT DATE: 20250311
